FAERS Safety Report 10512763 (Version 3)
Quarter: 2014Q4

REPORT INFORMATION
  Report Type: Spontaneous
  Country: US (occurrence: US)
  Receive Date: 20141013
  Receipt Date: 20141104
  Transmission Date: 20150528
  Serious: Yes (Other)
  Sender: FDA-Public Use
  Company Number: US-AMGEN-USASP2014077607

PATIENT
  Age: 20 Year
  Sex: Male

DRUGS (1)
  1. ENBREL [Suspect]
     Active Substance: ETANERCEPT
     Indication: PSORIASIS
     Dosage: 50 MG/CC 0.98CC SUBCUTANEOUS SYRINGE 2 TIMES/WK
     Route: 058
     Dates: start: 20120222

REACTIONS (6)
  - Skin plaque [Not Recovered/Not Resolved]
  - Skin warm [Recovered/Resolved]
  - Skin mass [Recovered/Resolved]
  - Injection site discolouration [Not Recovered/Not Resolved]
  - Injection site vesicles [Not Recovered/Not Resolved]
  - Injection site warmth [Not Recovered/Not Resolved]

NARRATIVE: CASE EVENT DATE: 2012
